APPROVED DRUG PRODUCT: PROTAMINE SULFATE
Active Ingredient: PROTAMINE SULFATE
Strength: 50MG/5ML (10MG/ML)
Dosage Form/Route: SOLUTION;INTRAVENOUS
Application: A089474 | Product #001
Applicant: HIKMA PHARMACEUTICALS USA INC
Approved: Nov 5, 1986 | RLD: No | RS: No | Type: DISCN